FAERS Safety Report 5232050-X (Version None)
Quarter: 2007Q1

REPORT INFORMATION
  Report Type: 
  Country: None (occurrence: None)
  Receive Date: 20070205
  Receipt Date: 20070126
  Transmission Date: 20070707
  Serious: Yes (Other)
  Sender: FDA-Public Use
  Company Number: 2007304594

PATIENT
  Sex: Female

DRUGS (2)
  1. DIPHENHYDRAMINE HCL [Suspect]
  2. TRAMADOL HCL [Suspect]
     Dosage: ORAL
     Route: 048
     Dates: start: 20060829

REACTIONS (2)
  - CONVULSION [None]
  - DRUG INTERACTION [None]
